FAERS Safety Report 21060402 (Version 2)
Quarter: 2022Q3

REPORT INFORMATION
  Report Type: Spontaneous
  Country: US (occurrence: US)
  Receive Date: 20220708
  Receipt Date: 20220806
  Transmission Date: 20221026
  Serious: No
  Sender: FDA-Public Use
  Company Number: US-SA-SAC20220706001067

PATIENT
  Sex: Female
  Weight: 88.4 kg

DRUGS (26)
  1. AUBAGIO [Suspect]
     Active Substance: TERIFLUNOMIDE
     Dosage: 14 MG, QD
     Route: 048
     Dates: start: 2017
  2. REMODULIN [Concomitant]
     Active Substance: TREPROSTINIL
  3. VITAMIN B12 [Concomitant]
     Active Substance: CYANOCOBALAMIN
  4. MAGNESIUM [Concomitant]
     Active Substance: MAGNESIUM
  5. VITAMIN B2 [Concomitant]
     Active Substance: RIBOFLAVIN
  6. COUMADIN [Concomitant]
     Active Substance: WARFARIN SODIUM
  7. CALCITRIOL [Concomitant]
     Active Substance: CALCITRIOL
  8. SYNTHROID [Concomitant]
     Active Substance: LEVOTHYROXINE SODIUM
  9. EPINEPHRINE [Concomitant]
     Active Substance: EPINEPHRINE
     Dosage: 0.15MG/0.3
  10. SINGULAIR [Concomitant]
     Active Substance: MONTELUKAST SODIUM
  11. ALLEGRA ALLERGY [Concomitant]
     Active Substance: FEXOFENADINE HYDROCHLORIDE
  12. XYZAL [Concomitant]
     Active Substance: LEVOCETIRIZINE DIHYDROCHLORIDE
  13. OMEPRAZOLE [Concomitant]
     Active Substance: OMEPRAZOLE
  14. XANAX [Concomitant]
     Active Substance: ALPRAZOLAM
  15. CELECOXIB [Concomitant]
     Active Substance: CELECOXIB
  16. TRILEPTAL [Concomitant]
     Active Substance: OXCARBAZEPINE
  17. REVATIO [Concomitant]
     Active Substance: SILDENAFIL CITRATE
  18. HYDROCHLOROTHIAZIDE [Concomitant]
     Active Substance: HYDROCHLOROTHIAZIDE
  19. NEURONTIN [Concomitant]
     Active Substance: GABAPENTIN
  20. TRACLEER [Concomitant]
     Active Substance: BOSENTAN
  21. ALDACTONE [Concomitant]
     Active Substance: SPIRONOLACTONE
  22. OXYGEN [Concomitant]
     Active Substance: OXYGEN
  23. BOTOX [Concomitant]
     Active Substance: ONABOTULINUMTOXINA
  24. CITRACAL 250+D [Concomitant]
  25. VITAMIN D3 [Concomitant]
     Active Substance: CHOLECALCIFEROL
  26. IRON [Concomitant]
     Active Substance: IRON

REACTIONS (2)
  - Ejection fraction decreased [Unknown]
  - Cardiac disorder [Unknown]
